FAERS Safety Report 8839552 (Version 1)
Quarter: 2012Q4

REPORT INFORMATION
  Report Type: Spontaneous
  Country: US (occurrence: None)
  Receive Date: 20121012
  Receipt Date: 20121012
  Transmission Date: 20130627
  Serious: Yes (Other)
  Sender: FDA-Public Use
  Company Number: None

PATIENT
  Age: 64 Year
  Sex: Male
  Weight: 82 kg

DRUGS (7)
  1. VEMURAFENIB [Suspect]
     Indication: MELANOMA
     Route: 048
     Dates: start: 20120816
  2. INVESTIGATIONAL DRUG [Suspect]
     Indication: MELANOMA
     Route: 048
     Dates: start: 20120816
  3. HYTIN 6MG [Concomitant]
  4. BUSPRONE 10MG [Concomitant]
  5. VITAMIN D 2000 UNITS [Concomitant]
  6. SIMVASTIN 20MG [Concomitant]
  7. DIOVAN 160MG [Concomitant]

REACTIONS (2)
  - Pigmentation disorder [None]
  - Skin cancer [None]
